FAERS Safety Report 17535803 (Version 1)
Quarter: 2020Q1

REPORT INFORMATION
  Report Type: Spontaneous
  Country: CN (occurrence: CN)
  Receive Date: 20200313
  Receipt Date: 20200313
  Transmission Date: 20200409
  Serious: Yes (Life-Threatening, Other)
  Sender: FDA-Public Use
  Company Number: CN-ROCHE-2566982

PATIENT
  Age: 73 Year
  Sex: Male
  Weight: 61 kg

DRUGS (4)
  1. MABTHERA [Suspect]
     Active Substance: RITUXIMAB
     Indication: DIFFUSE LARGE B-CELL LYMPHOMA
     Route: 041
     Dates: start: 20200213, end: 20200213
  2. SODIUM CHLORIDE. [Concomitant]
     Active Substance: SODIUM CHLORIDE
     Route: 041
     Dates: start: 20200213, end: 20200213
  3. DIPHENHYDRAMINE HYDROCHLORIDE. [Concomitant]
     Active Substance: DIPHENHYDRAMINE HYDROCHLORIDE
     Route: 041
     Dates: start: 20200213, end: 20200213
  4. DEXAMETHASONE SODIUM PHOSPHATE. [Concomitant]
     Active Substance: DEXAMETHASONE SODIUM PHOSPHATE
     Route: 041
     Dates: start: 20200213, end: 20200213

REACTIONS (5)
  - Chills [Recovered/Resolved]
  - Blood pressure increased [Recovering/Resolving]
  - Cardiac discomfort [Recovering/Resolving]
  - Shock [Recovering/Resolving]
  - Tachypnoea [Recovering/Resolving]

NARRATIVE: CASE EVENT DATE: 20200213
